FAERS Safety Report 25185664 (Version 1)
Quarter: 2025Q2

REPORT INFORMATION
  Report Type: Spontaneous
  Country: US (occurrence: US)
  Receive Date: 20250410
  Receipt Date: 20250410
  Transmission Date: 20250717
  Serious: No
  Sender: HISAMITSU PHARM
  Company Number: US-HISAMITSU-2025-US-007141

PATIENT
  Sex: Female

DRUGS (2)
  1. SALONPAS LIDOCAINE PAIN RELIEVING [Suspect]
     Active Substance: LIDOCAINE
     Indication: Analgesic therapy
     Route: 061
     Dates: start: 20250210
  2. SALONPAS PAIN RELIEF [Suspect]
     Active Substance: MENTHOL\METHYL SALICYLATE
     Indication: Analgesic therapy
     Route: 061
     Dates: start: 202502, end: 202502

REACTIONS (3)
  - Application site discolouration [Unknown]
  - Application site pain [Unknown]
  - Intentional product misuse [Recovered/Resolved]

NARRATIVE: CASE EVENT DATE: 20250201
